FAERS Safety Report 15594288 (Version 1)
Quarter: 2018Q4

REPORT INFORMATION
  Report Type: Report from Study
  Country: FR (occurrence: FR)
  Receive Date: 20181107
  Receipt Date: 20181107
  Transmission Date: 20190205
  Serious: Yes (Hospitalization, Other)
  Sender: FDA-Public Use
  Company Number: FR-PFIZER INC-2016523902

PATIENT
  Age: 42 Year
  Sex: Female
  Weight: 55 kg

DRUGS (2)
  1. MIFEGYNE [Suspect]
     Active Substance: MIFEPRISTONE
     Indication: ABORTION INDUCED
     Dosage: 200 MG, 1X/DAY
     Route: 048
     Dates: start: 20111011, end: 20111011
  2. CYTOTEC [Suspect]
     Active Substance: MISOPROSTOL
     Indication: ABORTION INDUCED
     Dosage: 400 UG, TWICE EVERY 3 HOURS (1 TABLET (400 ?G) AT 09:00 AM AND 1 TABLET (400 ?G) AT 12:00)
     Route: 002
     Dates: start: 20111013, end: 20111013

REACTIONS (8)
  - Haemostasis [Unknown]
  - Metrorrhagia [Recovered/Resolved with Sequelae]
  - Abortion induced incomplete [Recovered/Resolved with Sequelae]
  - Incorrect route of product administration [Unknown]
  - Drug ineffective for unapproved indication [Recovered/Resolved with Sequelae]
  - Product use in unapproved indication [Unknown]
  - Incorrect dose administered [Unknown]
  - Incorrect dose administered [Unknown]

NARRATIVE: CASE EVENT DATE: 2011
